FAERS Safety Report 6362064-8 (Version None)
Quarter: 2009Q3

REPORT INFORMATION
  Report Type: 
  Country: None (occurrence: None)
  Receive Date: 20090918
  Receipt Date: 20090911
  Transmission Date: 20100115
  Serious: Yes (Hospitalization)
  Sender: FDA-Public Use
  Company Number: PHEH2009US10839

PATIENT
  Sex: Male

DRUGS (15)
  1. NEORAL [Suspect]
     Dosage: 125 MG, BID
  2. CRESTOR [Concomitant]
  3. SPIRONOLACTONE [Concomitant]
  4. PROTONIX [Concomitant]
  5. PACERONE [Concomitant]
  6. MAGNESIUM [Concomitant]
  7. CELEXA [Concomitant]
  8. RAMIPRIL [Concomitant]
  9. LOPID [Concomitant]
  10. ALLOPURINOL [Concomitant]
  11. FUROSEMIDE [Concomitant]
  12. PREDNISONE [Concomitant]
  13. WARFARIN SODIUM [Concomitant]
  14. ZEMPLAR [Concomitant]
  15. VITAMIN D [Concomitant]

REACTIONS (1)
  - CARDIAC FAILURE CONGESTIVE [None]
